FAERS Safety Report 8333482-3 (Version None)
Quarter: 2012Q2

REPORT INFORMATION
  Report Type: 
  Country: None (occurrence: None)
  Receive Date: 20120503
  Receipt Date: 20101102
  Transmission Date: 20120825
  Serious: No
  Sender: FDA-Public Use
  Company Number: US-TEVA-2010005734

PATIENT
  Sex: Male
  Weight: 90.8 kg

DRUGS (3)
  1. NUVIGIL [Suspect]
     Indication: NARCOLEPSY
     Dosage: 150 MILLIGRAM;
     Route: 048
     Dates: start: 20101030, end: 20101101
  2. HUMALOG [Concomitant]
  3. NPH INSULIN [Concomitant]

REACTIONS (2)
  - ABDOMINAL DISCOMFORT [None]
  - COELIAC DISEASE [None]
